FAERS Safety Report 11197822 (Version 1)
Quarter: 2015Q2

REPORT INFORMATION
  Report Type: Report from Study
  Country: JP (occurrence: JP)
  Receive Date: 20150617
  Receipt Date: 20150617
  Transmission Date: 20150821
  Serious: Yes (Life-Threatening, Hospitalization, Other)
  Sender: FDA-Public Use
  Company Number: JP-GILEAD-2015-0158826

PATIENT
  Age: 46 Year
  Sex: Female

DRUGS (28)
  1. AMBRISENTAN [Suspect]
     Active Substance: AMBRISENTAN
     Dosage: 2.5 MG, QD
     Route: 048
     Dates: start: 20111119
  2. GASTER [Concomitant]
     Active Substance: FAMOTIDINE
     Dosage: UNK
  3. MAGNESIUM OXIDE. [Concomitant]
     Active Substance: MAGNESIUM OXIDE
     Dosage: UNK
  4. ALDACTONE [Concomitant]
     Active Substance: SPIRONOLACTONE
     Dosage: UNK
  5. FUROSEMIDE. [Concomitant]
     Active Substance: FUROSEMIDE
     Indication: PULMONARY ARTERIAL HYPERTENSION
     Dosage: UNK
  6. GASTER [Concomitant]
     Active Substance: FAMOTIDINE
     Dosage: UNK
  7. FEBURIC [Concomitant]
     Active Substance: FEBUXOSTAT
     Dosage: UNK
     Dates: start: 20121005
  8. CEFOTIALONE [Concomitant]
     Indication: INFECTION PROPHYLAXIS
     Dosage: UNK
     Dates: start: 20121106, end: 20121110
  9. AMBRISENTAN [Suspect]
     Active Substance: AMBRISENTAN
     Dosage: 7.5 MG, QD
     Route: 048
     Dates: start: 20110813, end: 20110916
  10. FLOLAN [Concomitant]
     Active Substance: EPOPROSTENOL SODIUM
     Dosage: 8.9NG/KG/MIN
     Route: 042
  11. BAYASPIRIN [Concomitant]
     Active Substance: ASPIRIN
     Dosage: UNK
     Dates: end: 20120906
  12. ANCARON [Concomitant]
     Active Substance: AMIODARONE HYDROCHLORIDE
     Dosage: UNK
  13. LAC-B [Concomitant]
     Active Substance: BIFIDOBACTERIUM SPP.
     Dosage: UNK
     Dates: end: 20130404
  14. AMBRISENTAN [Suspect]
     Active Substance: AMBRISENTAN
     Indication: PULMONARY ARTERIAL HYPERTENSION
     Dosage: 5 MG, QD
     Route: 048
     Dates: start: 20110715, end: 20110812
  15. MAINTATE [Concomitant]
     Active Substance: BISOPROLOL FUMARATE
     Dosage: UNK
  16. PENCLUSIN [Concomitant]
     Dosage: UNK
  17. CEFAZOLIN SODIUM. [Concomitant]
     Active Substance: CEFAZOLIN SODIUM
     Indication: INFECTION PROPHYLAXIS
     Dosage: UNK
     Dates: start: 20131101, end: 20131102
  18. RAVONAL [Concomitant]
     Active Substance: THIOPENTAL
     Dosage: UNK
     Dates: start: 20140508, end: 20140508
  19. AMBRISENTAN [Suspect]
     Active Substance: AMBRISENTAN
     Dosage: 5 MG, QD
     Route: 048
     Dates: start: 20110917, end: 20111118
  20. FLOLAN [Concomitant]
     Active Substance: EPOPROSTENOL SODIUM
     Dosage: 9.5NG/KG/MIN
     Route: 042
  21. WARFARIN [Concomitant]
     Active Substance: WARFARIN
     Dosage: UNK
  22. CEREKINON [Concomitant]
     Active Substance: TRIMEBUTINE
     Dosage: UNK
  23. DEPAS [Concomitant]
     Active Substance: ETIZOLAM
     Dosage: UNK
  24. FLOLAN [Concomitant]
     Active Substance: EPOPROSTENOL SODIUM
     Indication: PULMONARY ARTERIAL HYPERTENSION
     Dosage: 2.2NG/KG/MIN
     Route: 042
  25. ADCIRCA [Concomitant]
     Active Substance: TADALAFIL
     Indication: PULMONARY ARTERIAL HYPERTENSION
     Dosage: UNK
  26. PARAMIDIN [Concomitant]
     Active Substance: BUCOLOME
     Indication: THERAPEUTIC RESPONSE INCREASED
     Dosage: UNK
  27. ZYLORIC [Concomitant]
     Active Substance: ALLOPURINOL
     Dosage: UNK
     Dates: end: 20121004
  28. THYRADIN S [Concomitant]
     Active Substance: LEVOTHYROXINE SODIUM
     Dosage: UNK

REACTIONS (7)
  - Haemorrhagic diathesis [Recovered/Resolved]
  - Device connection issue [Unknown]
  - Stitch abscess [Recovered/Resolved]
  - Atrial fibrillation [Recovering/Resolving]
  - Pyrexia [Recovering/Resolving]
  - Atrial fibrillation [Unknown]
  - Prurigo [Recovered/Resolved]

NARRATIVE: CASE EVENT DATE: 20121103
